FAERS Safety Report 5268575-0 (Version None)
Quarter: 2007Q1

REPORT INFORMATION
  Report Type: 
  Country: None (occurrence: None)
  Receive Date: 20070313
  Receipt Date: 20070301
  Transmission Date: 20070707
  Serious: Yes (Other)
  Sender: FDA-Public Use
  Company Number: 15575

PATIENT
  Age: 70 Year
  Sex: Male

DRUGS (5)
  1. FLUOROURACIL [Suspect]
     Indication: COLORECTAL CANCER METASTATIC
     Dosage: 200 MG/M2 PER_CYCLE IV
     Route: 042
     Dates: start: 20060724
  2. FLUOROURACIL [Suspect]
     Indication: COLORECTAL CANCER METASTATIC
     Dosage: 1200 MG/M2 PER_CYCLE IV
     Route: 042
     Dates: start: 20060724
  3. LEUCOVORIN CALCIUM [Suspect]
     Indication: COLORECTAL CANCER METASTATIC
     Dosage: 350 MG PER_CYCLE UNK
     Dates: start: 20060724
  4. OXALIPLATIN [Suspect]
     Indication: COLORECTAL CANCER METASTATIC
     Dosage: 50 MG/M2 PER_CYCLE IV
     Route: 042
     Dates: start: 20060724
  5. AVASTIN [Suspect]
     Indication: COLORECTAL CANCER METASTATIC
     Dosage: 5 MG/KG PER_CYCLE IV
     Route: 042
     Dates: start: 20060724, end: 20070103

REACTIONS (1)
  - DEAFNESS UNILATERAL [None]
